FAERS Safety Report 6132656-X (Version None)
Quarter: 2009Q1

REPORT INFORMATION
  Report Type: 
  Country: None (occurrence: None)
  Receive Date: 20090324
  Receipt Date: 20090313
  Transmission Date: 20090719
  Serious: Yes (Other)
  Sender: FDA-Public Use
  Company Number: 2009US000538

PATIENT
  Age: 60 Year
  Sex: Female
  Weight: 66 kg

DRUGS (3)
  1. LEXISCAN [Suspect]
     Indication: SCAN MYOCARDIAL PERFUSION
     Dosage: 0.4 MG, IV NOS
     Route: 042
     Dates: start: 20090224, end: 20090224
  2. SALINE (SODIUM CHLORIDE) [Concomitant]
  3. TETROFOSMIN (TETROFOSMIN) [Concomitant]

REACTIONS (5)
  - BUNDLE BRANCH BLOCK [None]
  - DIZZINESS [None]
  - ELECTROCARDIOGRAM ST SEGMENT DEPRESSION [None]
  - NAUSEA [None]
  - SINUS BRADYCARDIA [None]
